FAERS Safety Report 7933813-X (Version None)
Quarter: 2011Q4

REPORT INFORMATION
  Report Type: 
  Country: None (occurrence: None)
  Receive Date: 20111118
  Receipt Date: 20111103
  Transmission Date: 20120403
  Serious: Yes (Hospitalization)
  Sender: FDA-Public Use
  Company Number: 2011AP002664

PATIENT
  Age: 53 Year
  Sex: Female

DRUGS (1)
  1. DICLOFENAC SODIUM [Suspect]
     Indication: ABDOMINAL PAIN

REACTIONS (2)
  - ANAPHYLACTIC SHOCK [None]
  - RASH [None]
